FAERS Safety Report 10631627 (Version 2)
Quarter: 2015Q3

REPORT INFORMATION
  Report Type: Report from Study
  Country: JP (occurrence: JP)
  Receive Date: 20141205
  Receipt Date: 20150727
  Transmission Date: 20151125
  Serious: Yes (Death, Other)
  Sender: FDA-Public Use
  Company Number: PHHY2014JP153295

PATIENT
  Age: 23 Year
  Sex: Female
  Weight: 33 kg

DRUGS (13)
  1. CERTICAN [Suspect]
     Active Substance: EVEROLIMUS
     Dosage: 1 MG, UNK
     Route: 048
     Dates: start: 20110218, end: 20110301
  2. PREDNISOLONE. [Concomitant]
     Active Substance: PREDNISOLONE
     Dosage: 10 MG, QOD
     Route: 048
     Dates: start: 20100727, end: 20100909
  3. PREDNISOLONE. [Concomitant]
     Active Substance: PREDNISOLONE
     Dosage: 20 MG, QOD
     Route: 048
     Dates: start: 20110224
  4. PREDNISOLONE. [Concomitant]
     Active Substance: PREDNISOLONE
     Dosage: 15 MG, QOD
     Route: 048
     Dates: start: 20110119, end: 20110131
  5. CERTICAN [Suspect]
     Active Substance: EVEROLIMUS
     Dosage: 0.5 MG, UNK
     Route: 048
     Dates: start: 20110212, end: 20110217
  6. CERTICAN [Suspect]
     Active Substance: EVEROLIMUS
     Dosage: 0.5 MG, UNK
     Route: 048
     Dates: start: 20110308
  7. MYCOPHENOLATE MOFETIL. [Concomitant]
     Active Substance: MYCOPHENOLATE MOFETIL
     Indication: LUNG TRANSPLANT
     Dosage: 750 MG, UNK
     Route: 048
     Dates: start: 20090324, end: 20100727
  8. PREDNISOLONE. [Concomitant]
     Active Substance: PREDNISOLONE
     Dosage: 10 MG, QD
     Route: 048
     Dates: start: 20100910, end: 20110118
  9. PREDNISOLONE. [Concomitant]
     Active Substance: PREDNISOLONE
     Indication: PRODUCT USED FOR UNKNOWN INDICATION
     Dosage: 7.5 MG, QOD
     Route: 048
     Dates: start: 20090729, end: 20100726
  10. CERTICAN [Suspect]
     Active Substance: EVEROLIMUS
     Indication: LUNG TRANSPLANT
     Dosage: 1 MG, UNK
     Route: 048
     Dates: start: 20100526, end: 20100531
  11. CERTICAN [Suspect]
     Active Substance: EVEROLIMUS
     Indication: HEART TRANSPLANT
     Dosage: 1.5 MG, UNK
     Route: 048
     Dates: start: 20100601, end: 20110210
  12. PREDNISOLONE. [Concomitant]
     Active Substance: PREDNISOLONE
     Dosage: 10 MG, QOD
     Route: 048
     Dates: start: 20110201, end: 20110223
  13. MYCOPHENOLATE MOFETIL. [Concomitant]
     Active Substance: MYCOPHENOLATE MOFETIL
     Dosage: 1000 MG, UNK
     Route: 048
     Dates: start: 20100728

REACTIONS (5)
  - Disease recurrence [Fatal]
  - Lymphoma [Fatal]
  - Pneumonia [Unknown]
  - Hyperlipidaemia [Not Recovered/Not Resolved]
  - Neutrophil count increased [Unknown]

NARRATIVE: CASE EVENT DATE: 20100609
